FAERS Safety Report 11440639 (Version 1)
Quarter: 2015Q3

REPORT INFORMATION
  Report Type: Spontaneous
  Country: US (occurrence: US)
  Receive Date: 20150821
  Receipt Date: 20150821
  Transmission Date: 20151125
  Serious: No
  Sender: FDA-Public Use
  Company Number: US-ELI_LILLY_AND_COMPANY-US200707004438

PATIENT
  Age: 26 Year
  Sex: Female

DRUGS (10)
  1. RESTORIL [Concomitant]
     Active Substance: TEMAZEPAM
  2. POTASSIUM [Concomitant]
     Active Substance: POTASSIUM
  3. LORAZEPAM. [Concomitant]
     Active Substance: LORAZEPAM
  4. KEPPRA [Concomitant]
     Active Substance: LEVETIRACETAM
  5. HYDROCHLOROTHIAZIDE. [Concomitant]
     Active Substance: HYDROCHLOROTHIAZIDE
  6. CYMBALTA [Suspect]
     Active Substance: DULOXETINE HYDROCHLORIDE
     Route: 048
  7. RAPAMUNE [Concomitant]
     Active Substance: SIROLIMUS
  8. CELLCEPT [Concomitant]
     Active Substance: MYCOPHENOLATE MOFETIL\MYCOPHENOLATE MOFETIL HYDROCHLORIDE
  9. PREDNISONE. [Concomitant]
     Active Substance: PREDNISONE
  10. ADDERALL [Concomitant]
     Active Substance: AMPHETAMINE ASPARTATE\AMPHETAMINE SULFATE\DEXTROAMPHETAMINE SACCHARATE\DEXTROAMPHETAMINE SULFATE

REACTIONS (3)
  - Urine amphetamine positive [Unknown]
  - Urine cannabinoids increased [Unknown]
  - Drug screen positive [Unknown]

NARRATIVE: CASE EVENT DATE: 20070716
